FAERS Safety Report 9613385 (Version 7)
Quarter: 2014Q4

REPORT INFORMATION
  Report Type: Spontaneous
  Country: JP (occurrence: JP)
  Receive Date: 20131010
  Receipt Date: 20141125
  Transmission Date: 20150529
  Serious: Yes (Life-Threatening, Hospitalization, Other)
  Sender: FDA-Public Use
  Company Number: JP-PFIZER INC-2013284393

PATIENT
  Age: 60 Year
  Sex: Male
  Weight: 56.1 kg

DRUGS (10)
  1. DECADRON [Suspect]
     Active Substance: DEXAMETHASONE
     Indication: BRAIN OEDEMA
     Dosage: 2 MG, DAILY
     Route: 048
     Dates: start: 20130720, end: 20130917
  2. SULFAMETHOXAZOLE AND TRIMETHOPRIM [Suspect]
     Active Substance: SULFAMETHOXAZOLE\TRIMETHOPRIM
     Dosage: 6 TABLETS, 3X/DAY
  3. SULFAMETHOXAZOLE AND TRIMETHOPRIM [Suspect]
     Active Substance: SULFAMETHOXAZOLE\TRIMETHOPRIM
     Indication: PNEUMOCYSTIS JIROVECII PNEUMONIA
     Dosage: 12 TABLETS, 3X/DAY
  4. TORISEL [Suspect]
     Active Substance: TEMSIROLIMUS
     Dosage: 20 MG, WEEKLY
     Route: 042
     Dates: start: 20130919, end: 20130919
  5. SULFAMETHOXAZOLE AND TRIMETHOPRIM [Suspect]
     Active Substance: SULFAMETHOXAZOLE\TRIMETHOPRIM
     Dosage: 2 TABLETS, 1X/DAY
  6. TORISEL [Suspect]
     Active Substance: TEMSIROLIMUS
     Indication: RENAL CANCER
     Dosage: 25 MG, WEEKLY
     Route: 042
     Dates: start: 20130912, end: 20130912
  7. CALONAL [Concomitant]
     Active Substance: ACETAMINOPHEN
     Indication: PAIN
     Dosage: 400 MG, 2X/DAY
     Route: 048
     Dates: start: 20130918
  8. TEPRENONE [Concomitant]
     Active Substance: TEPRENONE
     Indication: CHRONIC GASTRITIS
     Dosage: 50 MG, 2X/DAY
     Route: 048
     Dates: start: 20130915
  9. MAGMITT [Concomitant]
     Active Substance: MAGNESIUM OXIDE
     Indication: CONSTIPATION
     Dosage: 500 MG, 3X/DAY
     Route: 048
     Dates: start: 20130808
  10. DECADRON [Suspect]
     Active Substance: DEXAMETHASONE
     Dosage: 2 MG, 1X/DAY
     Route: 048
     Dates: start: 20131018

REACTIONS (6)
  - Pneumocystis jirovecii pneumonia [Recovering/Resolving]
  - Diabetes mellitus [Recovered/Resolved]
  - Depressed level of consciousness [Recovered/Resolved]
  - Pancytopenia [Not Recovered/Not Resolved]
  - Hyponatraemia [Unknown]
  - Vomiting [Unknown]

NARRATIVE: CASE EVENT DATE: 20130913
